FAERS Safety Report 4570142-9 (Version None)
Quarter: 2005Q1

REPORT INFORMATION
  Report Type: 
  Country: None (occurrence: None)
  Receive Date: 20050131
  Receipt Date: 20050119
  Transmission Date: 20050727
  Serious: Yes (Hospitalization)
  Sender: FDA-Public Use
  Company Number: S05-USA-00319-01

PATIENT
  Age: 17 Year
  Sex: Female

DRUGS (4)
  1. LEXAPRO [Suspect]
     Indication: DEPRESSION
     Dosage: 10 MG QD PO
     Route: 048
     Dates: start: 20041214, end: 20041218
  2. LEXAPRO [Suspect]
     Indication: DEPRESSION
     Dosage: 5 MG QD PO
     Route: 048
     Dates: start: 20041219, end: 20041224
  3. LEXAPRO [Suspect]
     Indication: DEPRESSION
     Dosage: 10 MG QD PO
     Route: 048
     Dates: start: 20041225, end: 20050112
  4. DEPO-PROVERA [Concomitant]

REACTIONS (6)
  - CONVULSION [None]
  - DRUG SCREEN POSITIVE [None]
  - FATIGUE [None]
  - LETHARGY [None]
  - LOSS OF CONSCIOUSNESS [None]
  - MOUTH INJURY [None]
